FAERS Safety Report 9869869 (Version 3)
Quarter: 2014Q2

REPORT INFORMATION
  Report Type: Spontaneous
  Country: US (occurrence: US)
  Receive Date: 20140205
  Receipt Date: 20140408
  Transmission Date: 20141212
  Serious: Yes (Death)
  Sender: FDA-Public Use
  Company Number: US-CELGENEUS-163-21880-14015323

PATIENT
  Age: 82 Year
  Sex: Male

DRUGS (5)
  1. REVLIMID [Suspect]
     Indication: CHRONIC LYMPHOCYTIC LEUKAEMIA
     Dosage: 10 MILLIGRAM
     Route: 048
     Dates: start: 20140110, end: 20140120
  2. ARANESP [Concomitant]
     Indication: RED BLOOD CELL COUNT DECREASED
     Route: 058
     Dates: start: 20111105, end: 20140109
  3. ARZERRA [Concomitant]
     Indication: CHRONIC LYMPHOCYTIC LEUKAEMIA
     Route: 041
     Dates: start: 20121031, end: 20130315
  4. NEUPOGEN [Concomitant]
     Indication: WHITE BLOOD CELL COUNT INCREASED
     Route: 058
     Dates: start: 20130722
  5. RITUXIMAB [Concomitant]
     Indication: CHRONIC LYMPHOCYTIC LEUKAEMIA
     Route: 041

REACTIONS (5)
  - Chronic lymphocytic leukaemia [Fatal]
  - Sepsis [Fatal]
  - Pneumonia [Fatal]
  - Febrile neutropenia [Fatal]
  - Urinary tract infection bacterial [Unknown]
